FAERS Safety Report 5814148-8 (Version None)
Quarter: 2008Q3

REPORT INFORMATION
  Report Type: 
  Country: None (occurrence: None)
  Receive Date: 20080717
  Receipt Date: 20080710
  Transmission Date: 20090109
  Serious: Yes (Other)
  Sender: FDA-Public Use
  Company Number: AU-PFIZER INC-2008057855

PATIENT
  Age: 75 Year
  Sex: Female

DRUGS (3)
  1. LIPITOR [Suspect]
  2. METFORMIN HCL [Concomitant]
  3. ANTIHYPERTENSIVES [Concomitant]

REACTIONS (3)
  - BLOOD CREATINE PHOSPHOKINASE INCREASED [None]
  - BLOOD CREATININE INCREASED [None]
  - MOBILITY DECREASED [None]
